FAERS Safety Report 7247296-9 (Version None)
Quarter: 2011Q1

REPORT INFORMATION
  Report Type: 
  Country: None (occurrence: None)
  Receive Date: 20110127
  Receipt Date: 20110121
  Transmission Date: 20110831
  Serious: Yes (Other)
  Sender: FDA-Public Use
  Company Number: A0909344A

PATIENT
  Sex: Female

DRUGS (2)
  1. PROMACTA [Suspect]
     Indication: IDIOPATHIC THROMBOCYTOPENIC PURPURA
     Dosage: 75MG PER DAY
     Route: 048
     Dates: start: 20100913, end: 20100929
  2. ROMIPLOSTIM [Concomitant]

REACTIONS (3)
  - DRUG INEFFECTIVE [None]
  - DISEASE PROGRESSION [None]
  - HAEMATOLOGICAL MALIGNANCY [None]
